FAERS Safety Report 17436512 (Version 1)
Quarter: 2020Q1

REPORT INFORMATION
  Report Type: Spontaneous
  Country: US (occurrence: US)
  Receive Date: 20200219
  Receipt Date: 20200219
  Transmission Date: 20200409
  Serious: Yes (Other)
  Sender: FDA-Public Use
  Company Number: US-AMERICAN REGENT INC-2020000354

PATIENT
  Sex: Female

DRUGS (2)
  1. INJECTAFER [Suspect]
     Active Substance: FERRIC CARBOXYMALTOSE
     Indication: SERUM FERRITIN DECREASED
     Dosage: UNK UNK, SINGLE
     Route: 065
     Dates: start: 20200204, end: 20200204
  2. INJECTAFER [Suspect]
     Active Substance: FERRIC CARBOXYMALTOSE
     Indication: MALABSORPTION

REACTIONS (10)
  - Flushing [Unknown]
  - Blood pressure decreased [Unknown]
  - Feeling hot [Unknown]
  - Blood phosphorus decreased [Unknown]
  - Blood pressure increased [Unknown]
  - Blood magnesium decreased [Unknown]
  - Blood pressure fluctuation [Unknown]
  - Feeling abnormal [Unknown]
  - Sleep disorder [Unknown]
  - Product use in unapproved indication [None]

NARRATIVE: CASE EVENT DATE: 202002
